FAERS Safety Report 4536069-3 (Version None)
Quarter: 2004Q4

REPORT INFORMATION
  Report Type: 
  Country: None (occurrence: None)
  Receive Date: 20041221
  Receipt Date: 20041221
  Transmission Date: 20050328
  Serious: Yes (Hospitalization)
  Sender: FDA-Public Use
  Company Number: None

PATIENT
  Age: 61 Year
  Sex: Female
  Weight: 61.2356 kg

DRUGS (5)
  1. FLUOROURACIL [Suspect]
     Indication: ANAL CANCER
     Dosage: 6480 MG IV/ 96 HRS
     Route: 042
     Dates: start: 20041213
  2. FLUOROURACIL [Suspect]
     Indication: ANAL CANCER
     Dosage: 6480 MG IV/ 96 HRS
     Route: 042
     Dates: start: 20041214
  3. FLUOROURACIL [Suspect]
     Indication: ANAL CANCER
     Dosage: 6480 MG IV/ 96 HRS
     Route: 042
     Dates: start: 20041215
  4. FLUOROURACIL [Suspect]
     Indication: ANAL CANCER
     Dosage: 6480 MG IV/ 96 HRS
     Route: 042
     Dates: start: 20041216
  5. CISPLATIN [Suspect]
     Indication: ANAL CANCER
     Dosage: 122 MG IV/ 1H
     Route: 042
     Dates: start: 20041213

REACTIONS (3)
  - DEHYDRATION [None]
  - DIZZINESS [None]
  - STOMATITIS [None]
